FAERS Safety Report 4909772-0 (Version None)
Quarter: 2006Q1

REPORT INFORMATION
  Report Type: 
  Country: None (occurrence: None)
  Receive Date: 20060208
  Receipt Date: 20060126
  Transmission Date: 20060701
  Serious: Yes (Hospitalization, Other)
  Sender: FDA-Public Use
  Company Number: 2005124768

PATIENT
  Age: 85 Year
  Sex: Female
  Weight: 47.1741 kg

DRUGS (3)
  1. DETROL [Suspect]
     Indication: BLADDER DISORDER
     Dosage: ORAL
     Route: 048
  2. NORVASC [Suspect]
     Indication: HYPERTENSION
     Dosage: 15 MG (5 MG, TID INTERVAL:  EVERY DAY), ORAL
     Route: 048
  3. SYNTHROID [Concomitant]

REACTIONS (7)
  - BLOOD PRESSURE FLUCTUATION [None]
  - BLOOD SODIUM DECREASED [None]
  - CEREBROVASCULAR ACCIDENT [None]
  - DRUG INEFFECTIVE [None]
  - FALL [None]
  - HYPERTENSION [None]
  - HYPOTENSION [None]
